FAERS Safety Report 7296310-3 (Version None)
Quarter: 2011Q1

REPORT INFORMATION
  Report Type: 
  Country: None (occurrence: None)
  Receive Date: 20110211
  Receipt Date: 20110211
  Transmission Date: 20110831
  Serious: Yes (Hospitalization)
  Sender: FDA-Public Use
  Company Number: None

PATIENT
  Age: 83 Year
  Sex: Female
  Weight: 57 kg

DRUGS (6)
  1. CAPTOPRIL [Concomitant]
  2. PERCOCET [Concomitant]
  3. POTASSIUM CHLORIDE [Concomitant]
  4. PRADAXA [Suspect]
     Indication: ATRIAL FIBRILLATION
     Dosage: 150 MG BID PO
     Route: 048
     Dates: start: 20101216, end: 20101218
  5. DIGOXIN [Concomitant]
  6. LASIX [Concomitant]

REACTIONS (14)
  - FAECES DISCOLOURED [None]
  - DYSPNOEA [None]
  - BUNDLE BRANCH BLOCK [None]
  - MALAISE [None]
  - PRESYNCOPE [None]
  - GASTROINTESTINAL HAEMORRHAGE [None]
  - DUODENAL ULCER HAEMORRHAGE [None]
  - ELECTROCARDIOGRAM ST SEGMENT DEPRESSION [None]
  - HAEMATOCHEZIA [None]
  - OEDEMA PERIPHERAL [None]
  - DUODENAL ULCER [None]
  - VISION BLURRED [None]
  - HAEMOGLOBIN DECREASED [None]
  - DISEASE RECURRENCE [None]
